FAERS Safety Report 5270446-0 (Version None)
Quarter: 2007Q1

REPORT INFORMATION
  Report Type: 
  Country: None (occurrence: None)
  Receive Date: 20070320
  Receipt Date: 20070309
  Transmission Date: 20070707
  Serious: Yes (Other)
  Sender: FDA-Public Use
  Company Number: JP-PFIZER INC-2007019369

PATIENT
  Sex: Female

DRUGS (3)
  1. NORVASC [Suspect]
     Dosage: DAILY DOSE:2.5MG
     Route: 048
     Dates: start: 20061201, end: 20070201
  2. BLOPRESS [Concomitant]
     Route: 048
  3. LORAZEPAM [Concomitant]
     Route: 048

REACTIONS (1)
  - EYELID OEDEMA [None]
